FAERS Safety Report 23701758 (Version 1)
Quarter: 2024Q2

REPORT INFORMATION
  Report Type: Spontaneous
  Country: CN (occurrence: CN)
  Receive Date: 20240403
  Receipt Date: 20240403
  Transmission Date: 20240716
  Serious: Yes (Other)
  Sender: FDA-Public Use
  Company Number: CN-009507513-2404CHN000266

PATIENT
  Age: 56 Year
  Sex: Male
  Weight: 61.5 kg

DRUGS (4)
  1. KEYTRUDA [Suspect]
     Active Substance: PEMBROLIZUMAB
     Indication: Gastric cancer
     Dosage: 200 MG, ONCE
     Route: 041
     Dates: start: 20240222, end: 20240222
  2. LENVATINIB MESYLATE [Suspect]
     Active Substance: LENVATINIB MESYLATE
     Indication: Gastric cancer
     Dosage: DOSE: 4 MG, FREQUENCY: TID
     Route: 048
     Dates: start: 20240223, end: 20240223
  3. PACLITAXEL [Suspect]
     Active Substance: PACLITAXEL
     Indication: Gastric cancer
     Dosage: DOSE: 350 MG, FREQUENCY: ONCE
     Route: 041
     Dates: start: 20240222, end: 20240222
  4. PACLITAXEL [Concomitant]
     Active Substance: PACLITAXEL
     Indication: Gastric cancer
     Dosage: DOSE: 60 MG, FREQUENCY: ONCE
     Dates: start: 20240222, end: 20240222

REACTIONS (2)
  - Myelosuppression [Recovering/Resolving]
  - Product use in unapproved indication [Unknown]

NARRATIVE: CASE EVENT DATE: 20240222
